FAERS Safety Report 11845028 (Version 1)
Quarter: 2015Q4

REPORT INFORMATION
  Report Type: Report from Study
  Country: US (occurrence: US)
  Receive Date: 20151217
  Receipt Date: 20151217
  Transmission Date: 20160305
  Serious: Yes (Hospitalization)
  Sender: FDA-Public Use
  Company Number: US-JNJFOC-20151210161

PATIENT
  Sex: Female
  Weight: 56.7 kg

DRUGS (9)
  1. XARELTO [Suspect]
     Active Substance: RIVAROXABAN
     Indication: CEREBROVASCULAR ACCIDENT PROPHYLAXIS
     Route: 048
  2. LEVOXYL [Concomitant]
     Active Substance: LEVOTHYROXINE SODIUM
     Indication: THYROID DISORDER
     Route: 065
  3. AMLODIPINE [Concomitant]
     Active Substance: AMLODIPINE BESYLATE
     Indication: HYPERTENSION
     Route: 065
  4. METOPROLOL [Suspect]
     Active Substance: METOPROLOL
     Indication: HYPERTENSION
     Route: 065
  5. XARELTO [Suspect]
     Active Substance: RIVAROXABAN
     Indication: ATRIAL FIBRILLATION
     Route: 048
  6. LOSARTAN. [Concomitant]
     Active Substance: LOSARTAN
     Indication: HYPERTENSION
     Route: 065
  7. XARELTO [Suspect]
     Active Substance: RIVAROXABAN
     Indication: ATRIAL FIBRILLATION
     Route: 048
  8. CALCIUM ACETATE. [Suspect]
     Active Substance: CALCIUM ACETATE
     Indication: PRODUCT USED FOR UNKNOWN INDICATION
     Route: 065
  9. XARELTO [Suspect]
     Active Substance: RIVAROXABAN
     Indication: CEREBROVASCULAR ACCIDENT PROPHYLAXIS
     Route: 048

REACTIONS (11)
  - Creatinine renal clearance decreased [Unknown]
  - Cardiac pacemaker insertion [Unknown]
  - Malabsorption [Unknown]
  - Body height decreased [Unknown]
  - Gastrointestinal disorder [Unknown]
  - Pruritus [Unknown]
  - Fatigue [Unknown]
  - Blood chloride increased [Not Recovered/Not Resolved]
  - Bladder disorder [Not Recovered/Not Resolved]
  - Blood urea increased [Not Recovered/Not Resolved]
  - Blood potassium increased [Not Recovered/Not Resolved]

NARRATIVE: CASE EVENT DATE: 2015
